FAERS Safety Report 14244226 (Version 2)
Quarter: 2017Q4

REPORT INFORMATION
  Report Type: Report from Study
  Country: TW (occurrence: TW)
  Receive Date: 20171201
  Receipt Date: 20171207
  Transmission Date: 20180321
  Serious: Yes (Death, Other)
  Sender: FDA-Public Use
  Company Number: TW-JNJFOC-20171136237

PATIENT
  Age: 65 Year
  Sex: Male

DRUGS (8)
  1. CLOBETASOL 0.05% [Concomitant]
     Active Substance: CLOBETASOL
     Indication: PSORIATIC ARTHROPATHY
     Dosage: 7G/TUBE-PRN
     Route: 061
     Dates: start: 20141211, end: 20171026
  2. FOLIC ACID. [Concomitant]
     Active Substance: FOLIC ACID
     Indication: PSORIATIC ARTHROPATHY
     Route: 048
     Dates: start: 20141211, end: 20160822
  3. CYCLOSPORIN [Concomitant]
     Active Substance: CYCLOSPORINE
     Indication: PSORIATIC ARTHROPATHY
     Route: 048
     Dates: start: 20150430, end: 20170115
  4. SIMPONI [Suspect]
     Active Substance: GOLIMUMAB
     Indication: PSORIATIC ARTHROPATHY
     Route: 058
     Dates: start: 20161027, end: 20170927
  5. METHOTREXATE. [Concomitant]
     Active Substance: METHOTREXATE
     Indication: PSORIATIC ARTHROPATHY
     Route: 048
     Dates: start: 20141211, end: 20150429
  6. LEVOCETIRIZINE [Concomitant]
     Active Substance: LEVOCETIRIZINE
     Indication: PSORIATIC ARTHROPATHY
     Route: 048
     Dates: start: 20170727, end: 20171026
  7. CALCITRIOL. [Concomitant]
     Active Substance: CALCITRIOL
     Indication: PSORIATIC ARTHROPATHY
     Dosage: 30G/TUBE-PRN
     Route: 061
     Dates: start: 20141211, end: 20160125
  8. SINPHARDERM [Concomitant]
     Indication: PSORIATIC ARTHROPATHY
     Dosage: 30G/TUBE
     Route: 061
     Dates: start: 20160126, end: 20171026

REACTIONS (2)
  - Death [Fatal]
  - Lung cancer metastatic [Not Recovered/Not Resolved]

NARRATIVE: CASE EVENT DATE: 20171108
